FAERS Safety Report 6808434-2 (Version None)
Quarter: 2010Q2

REPORT INFORMATION
  Report Type: 
  Country: None (occurrence: None)
  Receive Date: 20100629
  Receipt Date: 20090721
  Transmission Date: 20101027
  Serious: No
  Sender: FDA-Public Use
  Company Number: US-PFIZER INC-2009205791

PATIENT
  Sex: Male
  Weight: 92.517 kg

DRUGS (4)
  1. TIKOSYN [Suspect]
     Indication: ATRIAL FIBRILLATION
     Dosage: 250 UG, 2X/DAY
     Route: 048
     Dates: start: 20090403
  2. WARFARIN [Concomitant]
     Dates: start: 20080201
  3. LEVOTHYROXINE [Concomitant]
     Dates: start: 20080201
  4. MAGNESIUM OXIDE [Concomitant]
     Dates: start: 20090401

REACTIONS (1)
  - VISION BLURRED [None]
